FAERS Safety Report 6811087-0 (Version None)
Quarter: 2010Q2

REPORT INFORMATION
  Report Type: 
  Country: None (occurrence: None)
  Receive Date: 20100630
  Receipt Date: 20090421
  Transmission Date: 20101027
  Serious: No
  Sender: FDA-Public Use
  Company Number: US-PFIZER INC-2009176638

PATIENT
  Sex: Female
  Weight: 68 kg

DRUGS (5)
  1. ESTRING [Suspect]
     Indication: POSTMENOPAUSE
     Dosage: UNK
     Dates: start: 20090201, end: 20090201
  2. ESTRING [Suspect]
     Indication: BREAST CANCER
  3. ALPRAZOLAM [Concomitant]
     Indication: SLEEP DISORDER
     Dosage: UNK
  4. LEVOXYL [Concomitant]
  5. VITAMIN D [Concomitant]

REACTIONS (3)
  - ERYTHEMA [None]
  - VAGINAL SWELLING [None]
  - VULVOVAGINAL DISCOMFORT [None]
